FAERS Safety Report 24161603 (Version 1)
Quarter: 2024Q3

REPORT INFORMATION
  Report Type: Spontaneous
  Country: AU (occurrence: AU)
  Receive Date: 20240801
  Receipt Date: 20240801
  Transmission Date: 20241017
  Serious: Yes (Other)
  Sender: DR REDDYS
  Company Number: AU-AUS-SPO/AUS/24/0011177

PATIENT
  Age: 43 Year
  Sex: Female

DRUGS (3)
  1. IMATINIB [Suspect]
     Active Substance: IMATINIB
     Indication: Product used for unknown indication
  2. ASCIMINIB [Suspect]
     Active Substance: ASCIMINIB
     Indication: Product used for unknown indication
  3. NILOTINIB [Suspect]
     Active Substance: NILOTINIB
     Indication: Product used for unknown indication

REACTIONS (8)
  - Cytopenia [Unknown]
  - Pancreatitis [Unknown]
  - Abdominal pain [Unknown]
  - Fatigue [Unknown]
  - Lipase increased [Unknown]
  - Myalgia [Unknown]
  - Nausea [Unknown]
  - Therapeutic response decreased [Unknown]
